FAERS Safety Report 8273760-X (Version None)
Quarter: 2012Q2

REPORT INFORMATION
  Report Type: 
  Country: None (occurrence: None)
  Receive Date: 20120409
  Receipt Date: 20120409
  Transmission Date: 20120825
  Serious: No
  Sender: FDA-Public Use
  Company Number: None

PATIENT
  Age: 80 Year
  Sex: Male
  Weight: 121.8 kg

DRUGS (2)
  1. DABIGATRAN [Suspect]
     Indication: MITRAL VALVE REPLACEMENT
     Dosage: 150 MG BID PO
     Route: 048
     Dates: start: 20111223, end: 20120103
  2. DABIGATRAN [Suspect]
     Indication: ATRIAL FIBRILLATION
     Dosage: 150 MG BID PO
     Route: 048
     Dates: start: 20111223, end: 20120103

REACTIONS (4)
  - DIZZINESS [None]
  - HEADACHE [None]
  - ABDOMINAL PAIN [None]
  - DIARRHOEA [None]
